FAERS Safety Report 12436796 (Version 2)
Quarter: 2016Q2

REPORT INFORMATION
  Report Type: Spontaneous
  Country: IT (occurrence: IT)
  Receive Date: 20160606
  Receipt Date: 20160616
  Transmission Date: 20160815
  Serious: Yes (Other)
  Sender: FDA-Public Use
  Company Number: IT-ROCHE-1769721

PATIENT
  Age: 32 Year
  Sex: Female
  Weight: 80 kg

DRUGS (7)
  1. SOLDESAM [Concomitant]
     Active Substance: DEXAMETHASONE
     Indication: INFLAMMATION
     Route: 065
     Dates: start: 20160504
  2. TRIMETON (ITALY) [Concomitant]
     Indication: HYPERSENSITIVITY
     Route: 042
     Dates: start: 20160504
  3. NAVOBAN [Concomitant]
     Active Substance: TROPISETRON HYDROCHLORIDE
     Indication: PROPHYLAXIS OF NAUSEA AND VOMITING
     Route: 042
     Dates: start: 20160504
  4. ZANTAC [Concomitant]
     Active Substance: RANITIDINE HYDROCHLORIDE
     Indication: PROPHYLAXIS OF NAUSEA AND VOMITING
     Dosage: ^50 MG / 5 ML^ 10 VIALS
     Route: 042
     Dates: start: 20160504
  5. AVASTIN [Suspect]
     Active Substance: BEVACIZUMAB
     Indication: BREAST CANCER
     Route: 042
     Dates: start: 20160504
  6. AVASTIN [Suspect]
     Active Substance: BEVACIZUMAB
     Dosage: RESTARTED
     Route: 042
  7. PACLITAXEL. [Concomitant]
     Active Substance: PACLITAXEL
     Indication: BREAST CANCER
     Route: 042
     Dates: start: 20160504

REACTIONS (5)
  - Neutropenia [Recovered/Resolved]
  - Diarrhoea [Recovered/Resolved]
  - Abdominal pain [Recovered/Resolved]
  - Alanine aminotransferase increased [Recovered/Resolved]
  - Leukopenia [Recovered/Resolved]

NARRATIVE: CASE EVENT DATE: 20160512
